FAERS Safety Report 4938373-3 (Version None)
Quarter: 2006Q1

REPORT INFORMATION
  Report Type: 
  Country: None (occurrence: None)
  Receive Date: 20060308
  Receipt Date: 20060308
  Transmission Date: 20060701
  Serious: Yes (Disabling)
  Sender: FDA-Public Use
  Company Number: None

PATIENT
  Age: 85 Year
  Sex: Male
  Weight: 79.4 kg

DRUGS (1)
  1. FLEETS PHOSPHO- SODA [Suspect]
     Indication: COLONOSCOPY
     Dosage: 45 MLS ONCE BUCCAL
     Route: 002
     Dates: start: 20060113, end: 20060113

REACTIONS (5)
  - ASTHENIA [None]
  - DIZZINESS [None]
  - HYPOTENSION [None]
  - PRURITUS [None]
  - URTICARIA [None]
